FAERS Safety Report 11021466 (Version 1)
Quarter: 2015Q2

REPORT INFORMATION
  Report Type: Spontaneous
  Country: US (occurrence: US)
  Receive Date: 20150413
  Receipt Date: 20150413
  Transmission Date: 20150821
  Serious: Yes (Hospitalization, Disabling, Other)
  Sender: FDA-Public Use
  Company Number: US-SA-2015SA045867

PATIENT
  Age: 67 Year
  Sex: Female

DRUGS (2)
  1. LANTUS SOLOSTAR [Suspect]
     Active Substance: INSULIN GLARGINE
     Indication: TYPE 2 DIABETES MELLITUS
     Dosage: DOSE:10 UNIT(S)
     Route: 065
     Dates: start: 201410
  2. SOLOSTAR [Concomitant]
     Active Substance: DEVICE
     Dates: start: 201410

REACTIONS (6)
  - Bedridden [Unknown]
  - Surgery [Unknown]
  - Blood glucose increased [Unknown]
  - Incorrect product storage [Unknown]
  - Drug administration error [Unknown]
  - Infection [Unknown]

NARRATIVE: CASE EVENT DATE: 201501
